FAERS Safety Report 9487375 (Version 1)
Quarter: 2013Q3

REPORT INFORMATION
  Report Type: Report from Study
  Country: AU (occurrence: AU)
  Receive Date: 20130829
  Receipt Date: 20130829
  Transmission Date: 20140515
  Serious: Yes (Hospitalization, Other)
  Sender: FDA-Public Use
  Company Number: AU-ROCHE-1266976

PATIENT
  Age: 59 Year
  Sex: Male

DRUGS (9)
  1. PEGASYS [Suspect]
     Indication: HEPATITIS C
     Route: 058
     Dates: start: 20090612, end: 20120818
  2. PEGASYS [Suspect]
     Route: 058
  3. RIBAVIRIN [Suspect]
     Indication: HEPATITIS C
     Route: 048
     Dates: start: 20090612, end: 20120818
  4. RIBAVIRIN [Suspect]
     Route: 048
     Dates: start: 20121128
  5. ATENOLOL [Concomitant]
     Indication: HYPERTENSION
     Route: 048
     Dates: start: 20090420
  6. CITALOPRAM [Concomitant]
     Indication: DEPRESSION
     Route: 048
     Dates: start: 20090904
  7. PERINDOPRIL [Concomitant]
     Indication: HYPERTENSION
     Route: 048
     Dates: start: 20090302
  8. THYROXINE [Concomitant]
     Indication: HYPOTHYROIDISM
     Route: 048
     Dates: start: 20080501
  9. TACROLIMUS [Concomitant]
     Route: 048
     Dates: start: 20081112

REACTIONS (4)
  - Lobar pneumonia [Recovered/Resolved]
  - Renal failure acute [Recovered/Resolved]
  - Pancytopenia [Recovered/Resolved]
  - Sepsis [Unknown]
